FAERS Safety Report 6964060-6 (Version None)
Quarter: 2010Q3

REPORT INFORMATION
  Report Type: 
  Country: None (occurrence: None)
  Receive Date: 20100902
  Receipt Date: 20100902
  Transmission Date: 20110219
  Serious: Yes (Life-Threatening, Disabling)
  Sender: FDA-Public Use
  Company Number: None

PATIENT
  Age: 25 Year
  Sex: Male
  Weight: 111.1313 kg

DRUGS (6)
  1. FLEXERIL [Suspect]
     Indication: HEADACHE
     Dosage: 1 PILL 8 HOURS ORAL
     Route: 048
     Dates: start: 20100816
  2. FLEXERIL [Suspect]
     Indication: PARAESTHESIA
     Dosage: 1 PILL 8 HOURS ORAL
     Route: 048
     Dates: start: 20100816
  3. FLEXERIL [Suspect]
     Indication: RADIOTHERAPY
     Dosage: 1 PILL 8 HOURS ORAL
     Route: 048
     Dates: start: 20100816
  4. FLEXERIL [Suspect]
     Indication: HEADACHE
     Dosage: 1 PILL 8 HOURS ORAL
     Route: 048
     Dates: start: 20100818
  5. FLEXERIL [Suspect]
     Indication: PARAESTHESIA
     Dosage: 1 PILL 8 HOURS ORAL
     Route: 048
     Dates: start: 20100818
  6. FLEXERIL [Suspect]
     Indication: RADIOTHERAPY
     Dosage: 1 PILL 8 HOURS ORAL
     Route: 048
     Dates: start: 20100818

REACTIONS (3)
  - ARTHRALGIA [None]
  - HYPOAESTHESIA [None]
  - THIRST [None]
